FAERS Safety Report 8766046 (Version 7)
Quarter: 2013Q3

REPORT INFORMATION
  Report Type: Spontaneous
  Country: US (occurrence: US)
  Receive Date: 20120904
  Receipt Date: 20130919
  Transmission Date: 20140515
  Serious: Yes (Hospitalization, Disabling, Other)
  Sender: FDA-Public Use
  Company Number: US-MERCK-1208USA012374

PATIENT
  Sex: Female
  Weight: 76.64 kg

DRUGS (1)
  1. FOSAMAX [Suspect]
     Indication: OSTEOPOROSIS PROPHYLAXIS
     Dosage: 70 MG, QW
     Route: 048
     Dates: start: 200106, end: 20061120

REACTIONS (31)
  - Hip fracture [Not Recovered/Not Resolved]
  - Intramedullary rod insertion [Not Recovered/Not Resolved]
  - Femur fracture [Not Recovered/Not Resolved]
  - Osteoporosis [Not Recovered/Not Resolved]
  - Stress fracture [Not Recovered/Not Resolved]
  - Patella fracture [Unknown]
  - Open reduction of fracture [Unknown]
  - Myocardial infarction [Unknown]
  - Tendon rupture [Unknown]
  - Cellulitis [Recovering/Resolving]
  - Groin pain [Unknown]
  - Pain in extremity [Recovering/Resolving]
  - Road traffic accident [Unknown]
  - Blood cholesterol increased [Unknown]
  - Coronary artery disease [Unknown]
  - Chest discomfort [Unknown]
  - Choking sensation [Unknown]
  - Sinus bradycardia [Unknown]
  - Oesophageal spasm [Unknown]
  - Pharyngo-oesophageal diverticulum [Unknown]
  - Anxiety [Unknown]
  - Osteoarthritis [Unknown]
  - Haematoma [Unknown]
  - Intervertebral disc degeneration [Unknown]
  - Vascular calcification [Unknown]
  - Exostosis [Unknown]
  - Drug hypersensitivity [Unknown]
  - Local swelling [Unknown]
  - Constipation [Unknown]
  - Rash [Unknown]
  - Constipation [Unknown]
